FAERS Safety Report 11228125 (Version 1)
Quarter: 2015Q2

REPORT INFORMATION
  Report Type: Spontaneous
  Country: US (occurrence: US)
  Receive Date: 20150630
  Receipt Date: 20150630
  Transmission Date: 20150821
  Serious: No
  Sender: FDA-Public Use
  Company Number: US-BAUSCH-BL-2015-009518

PATIENT
  Age: 69 Year
  Sex: Female
  Weight: 90.8 kg

DRUGS (1)
  1. JUBLIA [Suspect]
     Active Substance: EFINACONAZOLE
     Indication: FUNGAL INFECTION
     Dosage: APPLY WITH BRUSH ONCE A DAY TO MIDDLE TOE ON LEFT FOOT.
     Route: 061
     Dates: start: 201502, end: 20150309

REACTIONS (4)
  - Discomfort [Recovered/Resolved]
  - Skin burning sensation [Recovered/Resolved]
  - Rosacea [Recovered/Resolved]
  - Dermatitis [Recovered/Resolved]

NARRATIVE: CASE EVENT DATE: 2015
